APPROVED DRUG PRODUCT: HYDROCODONE BITARTRATE AND ACETAMINOPHEN
Active Ingredient: ACETAMINOPHEN; HYDROCODONE BITARTRATE
Strength: 500MG;2.5MG
Dosage Form/Route: TABLET;ORAL
Application: A040123 | Product #003
Applicant: WATSON LABORATORIES INC
Approved: Mar 4, 1996 | RLD: No | RS: No | Type: DISCN